FAERS Safety Report 6409817-5 (Version None)
Quarter: 2009Q4

REPORT INFORMATION
  Report Type: 
  Country: None (occurrence: None)
  Receive Date: 20091021
  Receipt Date: 20091021
  Transmission Date: 20100525
  Serious: Yes (Other)
  Sender: FDA-Public Use
  Company Number: None

PATIENT
  Weight: 83.0083 kg

DRUGS (3)
  1. DEPAKOTE ER [Suspect]
     Indication: BIPOLAR DISORDER
     Dosage: 250 MG 1 AM; 500 MG 2 HS
     Dates: start: 20090714, end: 20090930
  2. ABILIFY [Suspect]
  3. COGENTIN [Concomitant]

REACTIONS (2)
  - EATING DISORDER [None]
  - TREMOR [None]
